FAERS Safety Report 4935532-0 (Version None)
Quarter: 2006Q1

REPORT INFORMATION
  Report Type: 
  Country: None (occurrence: None)
  Receive Date: 20060302
  Receipt Date: 20060210
  Transmission Date: 20060701
  Serious: No
  Sender: FDA-Public Use
  Company Number: US200602002923

PATIENT
  Age: 38 Year
  Sex: Female

DRUGS (3)
  1. CYMBALTA [Suspect]
     Dosage: 60 MG, DAILY (1/D), UNK
     Dates: start: 20051004, end: 20051129
  2. CYMBALTA [Suspect]
     Dosage: 60 MG, DAILY (1/D), UNK
     Dates: start: 20051129, end: 20060114
  3. VICODIN [Concomitant]

REACTIONS (1)
  - LIVER FUNCTION TEST ABNORMAL [None]
